FAERS Safety Report 11720504 (Version 2)
Quarter: 2015Q4

REPORT INFORMATION
  Report Type: Spontaneous
  Country: FR (occurrence: FR)
  Receive Date: 20151110
  Receipt Date: 20151125
  Transmission Date: 20160304
  Serious: Yes (Hospitalization)
  Sender: FDA-Public Use
  Company Number: FR-009507513-1511FRA004979

PATIENT
  Age: 88 Year
  Sex: Female

DRUGS (1)
  1. TIENAM IV 250MG/250MG, POUDRE POUR PERFUSION [Suspect]
     Active Substance: CILASTATIN SODIUM\IMIPENEM
     Indication: PNEUMONIA KLEBSIELLA
     Dosage: UNK
     Route: 042
     Dates: start: 20150722, end: 20150731

REACTIONS (3)
  - Condition aggravated [Unknown]
  - Disturbance in attention [Unknown]
  - Clonic convulsion [Unknown]

NARRATIVE: CASE EVENT DATE: 20150731
